FAERS Safety Report 16890374 (Version 1)
Quarter: 2019Q4

REPORT INFORMATION
  Report Type: Spontaneous
  Country: US (occurrence: US)
  Receive Date: 20190812
  Receipt Date: 20190812
  Transmission Date: 20200122
  Serious: Yes (Hospitalization)
  Sender: FDA-Public Use
  Company Number: None

PATIENT
  Age: 77 Year
  Sex: Male
  Weight: 49 kg

DRUGS (1)
  1. NAPROXEN. [Suspect]
     Active Substance: NAPROXEN
     Indication: HYPERTENSION
     Dates: end: 20190723

REACTIONS (2)
  - Hypertension [None]
  - Angina pectoris [None]

NARRATIVE: CASE EVENT DATE: 20190723
